FAERS Safety Report 21994353 (Version 1)
Quarter: 2023Q1

REPORT INFORMATION
  Report Type: Spontaneous
  Country: GB (occurrence: GB)
  Receive Date: 20230215
  Receipt Date: 20230215
  Transmission Date: 20230417
  Serious: Yes (Other)
  Sender: FDA-Public Use
  Company Number: None

PATIENT
  Age: 24 Year
  Sex: Male
  Weight: 81 kg

DRUGS (4)
  1. CALCIPOTRIENE [Suspect]
     Active Substance: CALCIPOTRIENE
     Indication: Product used for unknown indication
     Dosage: (APPLY TO THE AFFECTED AREA ONCE OR TWICE DAILY)
     Route: 061
  2. BETAMETHASONE VALERATE [Concomitant]
     Active Substance: BETAMETHASONE VALERATE
     Indication: Product used for unknown indication
     Dosage: (APPLY THINLY 1 TO 2 TIMES DAILY TO AFFECTED AREA)
     Route: 065
     Dates: start: 20220616
  3. BETNOVATE [Concomitant]
     Active Substance: BETAMETHASONE
     Indication: Product used for unknown indication
     Dosage: 1 DOSAGE FORM, QD (APPLY THINLY AS DIRECTED)
     Route: 065
     Dates: start: 20221209, end: 20230106
  4. FLUCLOXACILLIN [Concomitant]
     Active Substance: FLUCLOXACILLIN
     Indication: Product used for unknown indication
     Dosage: 1 DOSAGE FORM, QID (1 HOUR BEFORE)
     Route: 065
     Dates: start: 20230110, end: 20230117

REACTIONS (1)
  - Erythema [Recovered/Resolved]
